FAERS Safety Report 25813204 (Version 2)
Quarter: 2025Q4

REPORT INFORMATION
  Report Type: Spontaneous
  Country: EU (occurrence: EU)
  Receive Date: 20250917
  Receipt Date: 20251101
  Transmission Date: 20260117
  Serious: Yes (Other)
  Sender: AUROBINDO
  Company Number: EU-EMA-DD-20250908-7482643-125741

PATIENT
  Age: 31 Year
  Sex: Male

DRUGS (14)
  1. CYCLOSPORINE [Interacting]
     Active Substance: CYCLOSPORINE
     Indication: Renal transplant
     Dosage: 300 MILLIGRAM, ONCE A DAY (150 MG, BID)
     Route: 065
  2. CYCLOSPORINE [Interacting]
     Active Substance: CYCLOSPORINE
     Indication: Immunosuppressant drug therapy
     Dosage: 200 MILLIGRAM, ONCE A DAY (100 MG, BID)
     Route: 065
  3. CYCLOSPORINE [Interacting]
     Active Substance: CYCLOSPORINE
     Dosage: 100 MILLIGRAM, ONCE A DAY (50 MG, BID)
     Route: 065
  4. CYCLOSPORINE [Interacting]
     Active Substance: CYCLOSPORINE
     Dosage: 200 MILLIGRAM, DAILY
     Route: 065
  5. CYCLOSPORINE [Interacting]
     Active Substance: CYCLOSPORINE
     Dosage: 150 MILLIGRAM, TWO TIMES A DAY
     Route: 065
  6. MYCOPHENOLATE MOFETIL [Suspect]
     Active Substance: MYCOPHENOLATE MOFETIL
     Indication: Renal and pancreas transplant
     Dosage: 1500 MILLIGRAM, ONCE A DAY (750 MG, BID)
     Route: 065
  7. MYCOPHENOLATE MOFETIL [Suspect]
     Active Substance: MYCOPHENOLATE MOFETIL
     Indication: Immunosuppressant drug therapy
     Dosage: 500 MILLIGRAM, ONCE A DAY (250 MG, BID)
     Route: 065
  8. METHYLPREDNISOLONE [Suspect]
     Active Substance: METHYLPREDNISOLONE
     Indication: Immunosuppressant drug therapy
     Dosage: UNK
     Route: 065
  9. METHYLPREDNISOLONE [Suspect]
     Active Substance: METHYLPREDNISOLONE
     Dosage: UNK
     Route: 042
  10. PREDNISONE [Suspect]
     Active Substance: PREDNISONE
     Indication: Renal and pancreas transplant
     Dosage: 15 MILLIGRAM, ONCE A DAY (15 MILLIGRAM DAILY;)
     Route: 065
  11. PREDNISONE [Suspect]
     Active Substance: PREDNISONE
     Indication: Immunosuppressant drug therapy
     Dosage: 5 MILLIGRAM, ONCE A DAY (5 MILLIGRAM DAILY;)
     Route: 065
  12. LAMIVUDINE [Interacting]
     Active Substance: LAMIVUDINE
     Indication: Hepatitis B reactivation
     Dosage: 100 MILLIGRAM, ONCE A DAY (100 MILLIGRAM DAILY;)
     Route: 065
  13. LAPINE T-LYMPHOCYTE IMMUNE GLOBULIN [Concomitant]
     Active Substance: LAPINE T-LYMPHOCYTE IMMUNE GLOBULIN
     Indication: Product used for unknown indication
     Dosage: UNK
     Route: 065
  14. TACROLIMUS [Concomitant]
     Active Substance: TACROLIMUS
     Indication: Product used for unknown indication
     Dosage: 11 MILLIGRAM
     Route: 065

REACTIONS (16)
  - Body temperature increased [Unknown]
  - Immunosuppressant drug level decreased [Unknown]
  - Urine output decreased [Unknown]
  - Pancreas transplant rejection [Unknown]
  - Weight increased [Unknown]
  - Kidney transplant rejection [Recovering/Resolving]
  - Blood creatinine increased [Recovering/Resolving]
  - Alanine aminotransferase increased [Recovered/Resolved]
  - Aspartate aminotransferase increased [Recovered/Resolved]
  - Hyperglycaemia [Recovered/Resolved]
  - Hepatic function abnormal [Recovered/Resolved]
  - Prothrombin level decreased [Recovered/Resolved]
  - Blood albumin decreased [Recovered/Resolved]
  - Hepatitis B reactivation [Recovered/Resolved]
  - Drug interaction [Unknown]
  - Drug ineffective [Unknown]
